FAERS Safety Report 5613938-4 (Version None)
Quarter: 2008Q1

REPORT INFORMATION
  Report Type: 
  Country: None (occurrence: None)
  Receive Date: 20080205
  Receipt Date: 20080124
  Transmission Date: 20080703
  Serious: Yes (Hospitalization)
  Sender: FDA-Public Use
  Company Number: US-JNJFOC-20080106056

PATIENT
  Sex: Male
  Weight: 35.5 kg

DRUGS (5)
  1. INFLIXIMAB [Suspect]
     Dosage: MOST RECENT DOSE
     Route: 042
  2. INFLIXIMAB [Suspect]
     Indication: INFLAMMATORY BOWEL DISEASE
     Dosage: INITIAL INFUSION
     Route: 042
  3. 5-ASA [Concomitant]
     Route: 048
  4. MERCAPTOPURINE [Concomitant]
     Route: 065
  5. CIPRO [Concomitant]
     Route: 065

REACTIONS (2)
  - CROHN'S DISEASE [None]
  - ILEAL STENOSIS [None]
